FAERS Safety Report 16884515 (Version 9)
Quarter: 2022Q1

REPORT INFORMATION
  Report Type: Report from Study
  Country: US (occurrence: None)
  Receive Date: 20191004
  Receipt Date: 20220120
  Transmission Date: 20220424
  Serious: Yes (Hospitalization, Other)
  Sender: FDA-Public Use
  Company Number: US-ROCHE-2222984

PATIENT
  Age: 52 Year
  Sex: Female
  Weight: 80.6 kg

DRUGS (2)
  1. ATEZOLIZUMAB [Suspect]
     Active Substance: ATEZOLIZUMAB
     Indication: Breast cancer
     Dosage: ON 08/NOV/2018, SHE RECEIVED MOST RECENT DOSE OF ATEZOLIZUMAB.?1200 MG IV OVER 30-60 MINUTES ON DAY
     Route: 041
     Dates: start: 20180906, end: 20190221
  2. OLAPARIB [Suspect]
     Active Substance: OLAPARIB
     Indication: Breast cancer
     Dosage: ON 17/SEP/2018, SHE RECEIVED MOST RECENT DOSE OF OLAPARIB.?ON DAYS 1-21
     Route: 048
     Dates: start: 20180906, end: 20190409

REACTIONS (10)
  - Urinary tract infection [Recovering/Resolving]
  - Pyrexia [Recovering/Resolving]
  - Aspartate aminotransferase increased [Unknown]
  - Dysphonia [Unknown]
  - Dyspnoea [Not Recovered/Not Resolved]
  - Platelet count decreased [Unknown]
  - Hypoxia [Not Recovered/Not Resolved]
  - Seizure [Recovered/Resolved]
  - Pancytopenia [Unknown]
  - Anaemia [Unknown]

NARRATIVE: CASE EVENT DATE: 20181109
